FAERS Safety Report 16019182 (Version 2)
Quarter: 2019Q2

REPORT INFORMATION
  Report Type: Spontaneous
  Country: US (occurrence: US)
  Receive Date: 20190228
  Receipt Date: 20190423
  Transmission Date: 20190711
  Serious: Yes (Other)
  Sender: FDA-Public Use
  Company Number: US-ASTRAZENECA-2019SE31564

PATIENT
  Age: 28285 Day
  Sex: Female
  Weight: 112.4 kg

DRUGS (31)
  1. LIPITOR [Concomitant]
     Active Substance: ATORVASTATIN CALCIUM
  2. NEXIUM [Suspect]
     Active Substance: ESOMEPRAZOLE MAGNESIUM
     Indication: CARDIAC DISORDER
     Route: 048
     Dates: start: 20120821
  3. METFORMIN [Concomitant]
     Active Substance: METFORMIN HYDROCHLORIDE
  4. RANITIDINE. [Concomitant]
     Active Substance: RANITIDINE
  5. GLIPIZIDE. [Concomitant]
     Active Substance: GLIPIZIDE
  6. MACROBID [Concomitant]
     Active Substance: NITROFURANTOIN\NITROFURANTOIN MONOHYDRATE
  7. NEXIUM [Suspect]
     Active Substance: ESOMEPRAZOLE MAGNESIUM
     Indication: CARDIAC DISORDER
     Route: 048
     Dates: start: 20080227, end: 20130705
  8. CLINDAMYCIN. [Concomitant]
     Active Substance: CLINDAMYCIN
  9. GABAPENTIN. [Concomitant]
     Active Substance: GABAPENTIN
  10. DIAZEPAM. [Concomitant]
     Active Substance: DIAZEPAM
  11. PREDNISONE. [Concomitant]
     Active Substance: PREDNISONE
  12. ZOSTAVAX [Concomitant]
     Active Substance: VARICELLA-ZOSTER VIRUS STRAIN OKA/MERCK LIVE ANTIGEN
  13. DULOXETINE. [Concomitant]
     Active Substance: DULOXETINE
  14. CELEBREX [Concomitant]
     Active Substance: CELECOXIB
  15. ZETIA [Concomitant]
     Active Substance: EZETIMIBE
  16. OXYCODONE-ACETAMINOPHEN [Concomitant]
     Active Substance: ACETAMINOPHEN\OXYCODONE HYDROCHLORIDE
  17. ROPINIROLE. [Concomitant]
     Active Substance: ROPINIROLE
  18. SPIRIVA [Concomitant]
     Active Substance: TIOTROPIUM BROMIDE MONOHYDRATE
  19. HYDRALAZINE [Concomitant]
     Active Substance: HYDRALAZINE HYDROCHLORIDE
  20. PRILOSEC [Suspect]
     Active Substance: OMEPRAZOLE MAGNESIUM
     Route: 048
  21. OXYCODONE [Concomitant]
     Active Substance: OXYCODONE
  22. CIPRODEX [Concomitant]
     Active Substance: CIPROFLOXACIN HYDROCHLORIDE\DEXAMETHASONE
  23. CLOTRIMAZOLE. [Concomitant]
     Active Substance: CLOTRIMAZOLE
  24. PROMETHAZINE [Concomitant]
     Active Substance: PROMETHAZINE\PROMETHAZINE HYDROCHLORIDE
  25. TRIBENZOR [Concomitant]
     Active Substance: AMLODIPINE BESYLATE\HYDROCHLOROTHIAZIDE\OLMESARTAN MEDOXOMIL
  26. NYSTATIN. [Concomitant]
     Active Substance: NYSTATIN
  27. NEXIUM [Suspect]
     Active Substance: ESOMEPRAZOLE MAGNESIUM
     Indication: CARDIAC DISORDER
     Route: 048
     Dates: start: 20100206
  28. FUROSEMIDE. [Concomitant]
     Active Substance: FUROSEMIDE
  29. COLCHICINE. [Concomitant]
     Active Substance: COLCHICINE
  30. ALLOPURINOL. [Concomitant]
     Active Substance: ALLOPURINOL
  31. ZANTAC [Concomitant]
     Active Substance: RANITIDINE HYDROCHLORIDE

REACTIONS (2)
  - Renal failure [Unknown]
  - Chronic kidney disease [Not Recovered/Not Resolved]

NARRATIVE: CASE EVENT DATE: 20130212
